FAERS Safety Report 8220952-1 (Version None)
Quarter: 2012Q1

REPORT INFORMATION
  Report Type: 
  Country: None (occurrence: None)
  Receive Date: 20120320
  Receipt Date: 20120309
  Transmission Date: 20120608
  Serious: Yes (Death, Hospitalization, Disabling)
  Sender: FDA-Public Use
  Company Number: IT-BRISTOL-MYERS SQUIBB COMPANY-16447245

PATIENT
  Age: 75 Year
  Sex: Female
  Weight: 50 kg

DRUGS (10)
  1. PAROXETINE HCL [Concomitant]
  2. GEMCITABINE HYDROCHLORIDE [Suspect]
     Indication: PANCREATIC CARCINOMA METASTATIC
     Route: 042
     Dates: start: 20111212, end: 20120103
  3. DELORAZEPAM [Concomitant]
  4. METHEDRINE [Concomitant]
     Dates: start: 20111116
  5. METOPROLOL SUCCINATE [Concomitant]
     Dates: start: 20111116
  6. INSULIN [Concomitant]
     Dates: start: 20111116
  7. PACLITAXEL [Suspect]
     Indication: PANCREATIC CARCINOMA METASTATIC
     Route: 042
     Dates: start: 20111212, end: 20120103
  8. ENOXAPARIN [Concomitant]
     Dates: start: 20111116
  9. CALCIUM CARBONATE [Concomitant]
     Dates: start: 20111116
  10. REPAGLINIDE [Concomitant]
     Dates: start: 20111116

REACTIONS (3)
  - VOMITING [None]
  - CONFUSIONAL STATE [None]
  - VISUAL ACUITY REDUCED [None]
